FAERS Safety Report 7475244-5 (Version None)
Quarter: 2011Q2

REPORT INFORMATION
  Report Type: 
  Country: None (occurrence: None)
  Receive Date: 20110512
  Receipt Date: 20110509
  Transmission Date: 20111010
  Serious: Yes (Hospitalization)
  Sender: FDA-Public Use
  Company Number: TR-SANOFI-AVENTIS-2011SA028517

PATIENT
  Age: 47 Year
  Sex: Female

DRUGS (5)
  1. LEFLUNOMIDE [Suspect]
     Route: 065
  2. DEFLAZACORT [Concomitant]
     Route: 065
  3. LEFLUNOMIDE [Suspect]
     Route: 065
  4. METHOTREXATE [Concomitant]
     Route: 065
  5. HYDROXYCHLOROQUINE [Concomitant]
     Route: 065

REACTIONS (18)
  - DIARRHOEA [None]
  - ASTHENIA [None]
  - ASCITES [None]
  - LEUKOPENIA [None]
  - MEIGS' SYNDROME [None]
  - PLEURAL EFFUSION [None]
  - DYSPNOEA [None]
  - PALLOR [None]
  - PERICARDIAL EFFUSION [None]
  - HYPOTENSION [None]
  - CARBOHYDRATE ANTIGEN 125 INCREASED [None]
  - SYSTEMIC LUPUS ERYTHEMATOSUS [None]
  - POLYSEROSITIS [None]
  - ANAEMIA [None]
  - GENERAL PHYSICAL HEALTH DETERIORATION [None]
  - VOMITING [None]
  - PYREXIA [None]
  - C-REACTIVE PROTEIN INCREASED [None]
